FAERS Safety Report 7207064-0 (Version None)
Quarter: 2011Q1

REPORT INFORMATION
  Report Type: 
  Country: None (occurrence: None)
  Receive Date: 20110103
  Receipt Date: 20101222
  Transmission Date: 20110831
  Serious: Yes (Hospitalization, Other)
  Sender: FDA-Public Use
  Company Number: B0691474A

PATIENT
  Age: 74 Year
  Sex: Male

DRUGS (14)
  1. UNKNOWN MEDICATION [Concomitant]
  2. ENOXAPARIN SODIUM [Concomitant]
  3. WARFARIN [Concomitant]
  4. AMOXICILLIN AND CLAVULANATE POTASSIUM [Suspect]
     Indication: PNEUMONIA
     Route: 065
     Dates: start: 20101022, end: 20101001
  5. CANDESARTAN [Concomitant]
  6. ALOPURINOL [Concomitant]
  7. INSULIN [Concomitant]
  8. CORDARONE [Concomitant]
  9. NORVASC [Concomitant]
  10. NOVOCEF [Concomitant]
  11. CONCOR [Concomitant]
  12. FURSEMID [Concomitant]
  13. AZITROMYCIN [Concomitant]
  14. ASPIRIN [Concomitant]

REACTIONS (7)
  - DRUG INTERACTION [None]
  - ATRIAL FIBRILLATION [None]
  - URINE OUTPUT DECREASED [None]
  - PROTHROMBIN TIME SHORTENED [None]
  - OLIGURIA [None]
  - BLOOD CREATININE INCREASED [None]
  - LEUKOPENIA [None]
